APPROVED DRUG PRODUCT: MOMETASONE FUROATE
Active Ingredient: MOMETASONE FUROATE
Strength: 0.1%
Dosage Form/Route: CREAM;TOPICAL
Application: A077447 | Product #001 | TE Code: AB
Applicant: COSETTE PHARMACEUTICALS INC
Approved: May 22, 2006 | RLD: No | RS: Yes | Type: RX